FAERS Safety Report 9575043 (Version 1)
Quarter: 2013Q4

REPORT INFORMATION
  Report Type: Spontaneous
  Country: US (occurrence: US)
  Receive Date: 20131001
  Receipt Date: 20131001
  Transmission Date: 20140711
  Serious: Yes (Hospitalization, Other)
  Sender: FDA-Public Use
  Company Number: US-ASTRAZENECA-2013SE71430

PATIENT
  Age: 28880 Day
  Sex: Female
  Weight: 77.1 kg

DRUGS (13)
  1. TOPROL XL [Suspect]
     Route: 048
  2. XARELTO [Suspect]
     Indication: ATRIAL FIBRILLATION
     Route: 048
     Dates: start: 2012, end: 201307
  3. XARELTO [Suspect]
     Indication: ATRIAL FIBRILLATION
     Route: 048
     Dates: start: 2012, end: 201307
  4. XARELTO [Suspect]
     Indication: ATRIAL FIBRILLATION
     Route: 048
     Dates: start: 20130718, end: 20130822
  5. XARELTO [Suspect]
     Indication: ATRIAL FIBRILLATION
     Route: 048
     Dates: start: 20130718, end: 20130822
  6. XARELTO [Suspect]
     Indication: ATRIAL FIBRILLATION
     Route: 048
     Dates: start: 201308, end: 201308
  7. XARELTO [Suspect]
     Indication: ATRIAL FIBRILLATION
     Route: 048
     Dates: start: 201308, end: 201308
  8. XARELTO [Suspect]
     Indication: ATRIAL FIBRILLATION
     Route: 048
     Dates: start: 201308
  9. XARELTO [Suspect]
     Indication: ATRIAL FIBRILLATION
     Route: 048
     Dates: start: 201308
  10. DILTIAZEM ER [Suspect]
     Dates: end: 201308
  11. DILTIAZEM ER [Suspect]
     Dates: start: 201308
  12. RESTASIS [Concomitant]
     Route: 031
  13. UNSPECIFIED ANTIBIOTIC [Concomitant]

REACTIONS (12)
  - Haematochezia [Recovered/Resolved]
  - Blood iron decreased [Unknown]
  - Coagulation factor VIII level increased [Unknown]
  - Full blood count decreased [Unknown]
  - Tooth fracture [Recovered/Resolved]
  - Abscess [Recovered/Resolved]
  - Tenderness [Recovered/Resolved]
  - Gastrointestinal sounds abnormal [Recovered/Resolved]
  - Feeling abnormal [Recovering/Resolving]
  - Fatigue [Recovering/Resolving]
  - Asthenia [Recovering/Resolving]
  - Dizziness [Recovering/Resolving]
